FAERS Safety Report 8966344 (Version 1)
Quarter: 2012Q4

REPORT INFORMATION
  Report Type: 
  Country: US (occurrence: US)
  Receive Date: 20121214
  Receipt Date: 20121214
  Transmission Date: 20130627
  Serious: Yes (Hospitalization)
  Sender: FDA-Public Use
  Company Number: US-GLAXOSMITHKLINE-A0886363A

PATIENT
  Age: 50 Year
  Sex: Female
  Weight: 115.9 kg

DRUGS (1)
  1. ROSIGLITAZONE MALEATE [Suspect]
     Indication: DIABETES MELLITUS
     Route: 048

REACTIONS (6)
  - Eye haemorrhage [Not Recovered/Not Resolved]
  - Cerebrovascular accident [Unknown]
  - Atrial fibrillation [Unknown]
  - Cardiac valve disease [Unknown]
  - Stomach mass [Unknown]
  - Dyspnoea [Unknown]
